FAERS Safety Report 6675339-X (Version None)
Quarter: 2010Q2

REPORT INFORMATION
  Report Type: 
  Country: None (occurrence: None)
  Receive Date: 20100409
  Receipt Date: 20100215
  Transmission Date: 20101027
  Serious: No
  Sender: FDA-Public Use
  Company Number: A0844506A

PATIENT
  Age: 57 Year
  Sex: Female

DRUGS (8)
  1. TYKERB [Suspect]
     Indication: BREAST CANCER
     Dosage: 4TAB PER DAY
     Route: 048
     Dates: start: 20100210, end: 20100213
  2. HERCEPTIN [Concomitant]
  3. SYNTHROID [Concomitant]
  4. MS CONTIN [Concomitant]
  5. AMBIEN [Concomitant]
  6. CELEBREX [Concomitant]
  7. SIMVASTATIN [Concomitant]
  8. VICODIN [Concomitant]

REACTIONS (3)
  - FATIGUE [None]
  - NAUSEA [None]
  - VOMITING [None]
